FAERS Safety Report 18015879 (Version 1)
Quarter: 2020Q3

REPORT INFORMATION
  Report Type: Spontaneous
  Country: DE (occurrence: DE)
  Receive Date: 20200713
  Receipt Date: 20200713
  Transmission Date: 20201103
  Serious: Yes (Other)
  Sender: FDA-Public Use
  Company Number: DE-JNJFOC-20200701996

PATIENT
  Age: 59 Year
  Sex: Male
  Weight: 85 kg

DRUGS (6)
  1. FOLSAN [Concomitant]
     Active Substance: FOLIC ACID
  2. MTX HEXAL [Concomitant]
     Active Substance: METHOTREXATE SODIUM
     Route: 065
  3. REMICADE [Suspect]
     Active Substance: INFLIXIMAB
     Indication: PRODUCT USED FOR UNKNOWN INDICATION
     Route: 042
     Dates: start: 201601, end: 202005
  4. CANDESARTAN. [Concomitant]
     Active Substance: CANDESARTAN
     Dosage: DAILY DOSE: 0.5 DF DOSAGE FORM EVERY DAYS
  5. INFLECTRA [Concomitant]
     Active Substance: INFLIXIMAB-DYYB
  6. SIMVASTATIN. [Concomitant]
     Active Substance: SIMVASTATIN
     Dosage: DAILY DOSE: 0.5 DF DOSAGE FORM EVERY DAYS
     Route: 065

REACTIONS (2)
  - Bence Jones protein urine [Unknown]
  - Monoclonal gammopathy [Unknown]

NARRATIVE: CASE EVENT DATE: 2017
